FAERS Safety Report 7253389-2 (Version None)
Quarter: 2011Q1

REPORT INFORMATION
  Report Type: 
  Country: None (occurrence: None)
  Receive Date: 20110129
  Receipt Date: 20100308
  Transmission Date: 20110831
  Serious: Yes (Hospitalization)
  Sender: FDA-Public Use
  Company Number: US-ABBOTT-10P-163-0629412-00

PATIENT
  Sex: Female
  Weight: 59.02 kg

DRUGS (1)
  1. HUMIRA [Suspect]
     Indication: CROHN'S DISEASE
     Dosage: 160 MG LOADING DOSE
     Route: 058
     Dates: start: 20100213, end: 20100213

REACTIONS (6)
  - PNEUMONIA [None]
  - BLOOD POTASSIUM INCREASED [None]
  - DYSPNOEA [None]
  - PAINFUL RESPIRATION [None]
  - ANXIETY [None]
  - INFLUENZA LIKE ILLNESS [None]
